FAERS Safety Report 7524065-3 (Version None)
Quarter: 2011Q2

REPORT INFORMATION
  Report Type: 
  Country: None (occurrence: None)
  Receive Date: 20110605
  Receipt Date: 20110602
  Transmission Date: 20111010
  Serious: Yes (Hospitalization)
  Sender: FDA-Public Use
  Company Number: GB-BRISTOL-MYERS SQUIBB COMPANY-15760887

PATIENT
  Age: 42 Year
  Sex: Female

DRUGS (1)
  1. IPILIMUMAB [Suspect]
     Indication: MALIGNANT MELANOMA
     Dosage: VIAL # 261707-261708,261709-261710,262631
     Route: 042
     Dates: start: 20110404

REACTIONS (3)
  - NAUSEA [None]
  - BACK PAIN [None]
  - DIARRHOEA [None]
